FAERS Safety Report 8342594 (Version 5)
Quarter: 2014Q4

REPORT INFORMATION
  Report Type: Spontaneous
  Country: US (occurrence: US)
  Receive Date: 20120118
  Receipt Date: 20141006
  Transmission Date: 20150529
  Serious: Yes (Other)
  Sender: FDA-Public Use
  Company Number: US-PFIZER INC-2012003913

PATIENT
  Age: 73 Year
  Sex: Female
  Weight: 58.96 kg

DRUGS (8)
  1. LIPITOR [Concomitant]
     Active Substance: ATORVASTATIN CALCIUM
     Dosage: UNK, DAILY (AT NIGHT)
  2. CYTOTEC [Suspect]
     Active Substance: MISOPROSTOL
     Indication: ABDOMINAL PAIN UPPER
     Dosage: UNK
  3. METOPROLOL [Concomitant]
     Active Substance: METOPROLOL
     Dosage: UNK
  4. BABY ASPIRIN [Concomitant]
     Active Substance: ASPIRIN
     Dosage: UNK, DAILY (IN THE MORNING)
  5. LYRICA [Suspect]
     Active Substance: PREGABALIN
     Indication: OSTEOARTHRITIS
     Dosage: 75 MG, 2X/DAY
     Route: 048
     Dates: start: 2008, end: 201408
  6. DICLOFENAC [Concomitant]
     Active Substance: DICLOFENAC
     Dosage: UNK
  7. LYRICA [Suspect]
     Active Substance: PREGABALIN
     Indication: FIBROMYALGIA
     Dosage: UNK
  8. LISINOPRIL. [Concomitant]
     Active Substance: LISINOPRIL
     Dosage: UNK

REACTIONS (15)
  - Off label use [Unknown]
  - Nausea [Unknown]
  - Hypertension [Unknown]
  - Hypotension [Unknown]
  - Cardiac disorder [Unknown]
  - Osteoporosis [Unknown]
  - Arthropathy [Unknown]
  - Vertigo [Unknown]
  - Peripheral swelling [Recovered/Resolved]
  - Dizziness [Unknown]
  - Body height decreased [Unknown]
  - Atrioventricular block [Unknown]
  - Heart valve incompetence [Unknown]
  - Heart rate increased [Unknown]
  - Weight increased [Unknown]

NARRATIVE: CASE EVENT DATE: 2008
